FAERS Safety Report 18250434 (Version 1)
Quarter: 2020Q3

REPORT INFORMATION
  Report Type: Report from Study
  Country: US (occurrence: US)
  Receive Date: 20200909
  Receipt Date: 20200909
  Transmission Date: 20201103
  Serious: Yes (Death, Hospitalization, Other)
  Sender: FDA-Public Use
  Company Number: US-JNJFOC-A-US2020-204419

PATIENT
  Age: 71 Year
  Sex: Female
  Weight: 55.78 kg

DRUGS (3)
  1. UPTRAVI [Suspect]
     Active Substance: SELEXIPAG
     Indication: PULMONARY ARTERIAL HYPERTENSION
     Dosage: 1200 MCG, BID
     Route: 048
     Dates: start: 20190728, end: 20200412
  2. PREDNISONE. [Concomitant]
     Active Substance: PREDNISONE
     Dates: start: 20181011
  3. OPSUMIT [Suspect]
     Active Substance: MACITENTAN
     Indication: PULMONARY ARTERIAL HYPERTENSION
     Dosage: 10 MG, QD
     Route: 048
     Dates: start: 20200115, end: 20200412

REACTIONS (4)
  - Acute respiratory failure [Not Recovered/Not Resolved]
  - Pneumonia [Not Recovered/Not Resolved]
  - Cardio-respiratory arrest [Fatal]
  - Pulmonary arterial hypertension [Not Recovered/Not Resolved]

NARRATIVE: CASE EVENT DATE: 20200412
